FAERS Safety Report 6822322-7 (Version None)
Quarter: 2010Q3

REPORT INFORMATION
  Report Type: 
  Country: None (occurrence: None)
  Receive Date: 20100707
  Receipt Date: 20100707
  Transmission Date: 20110219
  Serious: Yes (Other)
  Sender: FDA-Public Use
  Company Number: None

PATIENT
  Age: 63 Year
  Sex: Female
  Weight: 58.514 kg

DRUGS (2)
  1. OMEPRAZOLE [Suspect]
     Indication: BARRETT'S OESOPHAGUS
     Dosage: 20MG DAILY PO
     Route: 048
     Dates: start: 20100610, end: 20100702
  2. OMEPRAZOLE [Suspect]
     Indication: BIOPSY
     Dosage: 20MG DAILY PO
     Route: 048
     Dates: start: 20100610, end: 20100702

REACTIONS (3)
  - ASTHENIA [None]
  - FATIGUE [None]
  - SOMNOLENCE [None]
